FAERS Safety Report 24237754 (Version 1)
Quarter: 2024Q3

REPORT INFORMATION
  Report Type: Spontaneous
  Country: ZA (occurrence: ZA)
  Receive Date: 20240822
  Receipt Date: 20240822
  Transmission Date: 20241016
  Serious: Yes (Death, Other)
  Sender: FRESENIUS KABI
  Company Number: ZA-FreseniusKabi-FK202412580

PATIENT
  Age: 67 Year
  Sex: Male
  Weight: 107 kg

DRUGS (5)
  1. HEPARIN SODIUM [Suspect]
     Active Substance: HEPARIN SODIUM
     Indication: Coagulopathy
     Dosage: TIME: 16:20: 10000 IU; HEPARIN SAMPLE 1 DID NOT WORK?TIME: 16:33: 5000 IU; HEPARIN SAMPLE 2 DID WORK
     Route: 042
  2. ATROPINE [Concomitant]
     Active Substance: ATROPINE
     Indication: Product used for unknown indication
     Route: 042
  3. PROPOFOL [Concomitant]
     Active Substance: PROPOFOL
     Indication: Product used for unknown indication
     Route: 042
  4. ALFENTANIL HYDROCHLORIDE [Concomitant]
     Active Substance: ALFENTANIL HYDROCHLORIDE
     Indication: Product used for unknown indication
     Route: 042
  5. MIDAZOLAM HYDROCHLORIDE [Concomitant]
     Active Substance: MIDAZOLAM HYDROCHLORIDE
     Indication: Product used for unknown indication
     Route: 042

REACTIONS (2)
  - Thrombosis [Fatal]
  - Drug ineffective [Unknown]

NARRATIVE: CASE EVENT DATE: 20240814
